FAERS Safety Report 4594942-4 (Version None)
Quarter: 2005Q1

REPORT INFORMATION
  Report Type: 
  Country: None (occurrence: None)
  Receive Date: 20050225
  Receipt Date: 20050215
  Transmission Date: 20050727
  Serious: Yes (Other)
  Sender: FDA-Public Use
  Company Number: 2005031290

PATIENT
  Age: 76 Year
  Sex: Female
  Weight: 95.2554 kg

DRUGS (7)
  1. LIPITOR [Suspect]
     Indication: BLOOD CHOLESTEROL
     Dosage: 10 MG (10 MG, 1 IN 1 D), ORAL
     Route: 048
  2. NEURONTIN [Suspect]
     Indication: NEUROPATHY
     Dosage: ORAL
     Route: 048
     Dates: start: 20040101, end: 20040101
  3. FLUOXETINE HYDROCHLORIDE [Suspect]
     Indication: DEPRESSION
     Dosage: ORAL
     Route: 048
  4. IRBESARTAN [Concomitant]
  5. DIGOXIN [Concomitant]
  6. WARRARIN SODIUM (WARFARIN SODIUM) [Concomitant]
  7. ESCITALOPRAM (ESCITALOPRAM) [Concomitant]

REACTIONS (11)
  - ABASIA [None]
  - DRUG EFFECT DECREASED [None]
  - DRUG INEFFECTIVE [None]
  - FEELING HOT AND COLD [None]
  - HYPOAESTHESIA [None]
  - INSOMNIA [None]
  - NEUROPATHY [None]
  - PAIN [None]
  - SEDATION [None]
  - SPINAL FRACTURE [None]
  - VISION BLURRED [None]
